FAERS Safety Report 4899052-4 (Version None)
Quarter: 2006Q1

REPORT INFORMATION
  Report Type: 
  Country: None (occurrence: None)
  Receive Date: 20060202
  Receipt Date: 20060130
  Transmission Date: 20060701
  Serious: Yes (Other)
  Sender: FDA-Public Use
  Company Number: US-JNJFOC-20051003559

PATIENT
  Sex: Female
  Weight: 56.7 kg

DRUGS (1)
  1. ORTHO EVRA [Suspect]
     Route: 062
     Dates: start: 20050401

REACTIONS (2)
  - POLYARTHRITIS [None]
  - SARCOIDOSIS [None]
